FAERS Safety Report 4595524-0 (Version None)
Quarter: 2005Q1

REPORT INFORMATION
  Report Type: 
  Country: None (occurrence: None)
  Receive Date: 20050228
  Receipt Date: 20050228
  Transmission Date: 20050727
  Serious: No
  Sender: FDA-Public Use
  Company Number: None

PATIENT
  Age: 55 Year
  Sex: Male
  Weight: 110 kg

DRUGS (1)
  1. MIRTAZAPINE [Suspect]
     Indication: DEPRESSION
     Dosage: 30 MG PO HS
     Route: 048
     Dates: start: 20031120, end: 20041101

REACTIONS (2)
  - INCREASED APPETITE [None]
  - WEIGHT INCREASED [None]
